FAERS Safety Report 5229942-4 (Version None)
Quarter: 2007Q1

REPORT INFORMATION
  Report Type: 
  Country: None (occurrence: None)
  Receive Date: 20070206
  Receipt Date: 20060714
  Transmission Date: 20070707
  Serious: No
  Sender: FDA-Public Use
  Company Number: US-GLAXOSMITHKLINE-A0612320A

PATIENT
  Age: 13 Year
  Sex: Female

DRUGS (2)
  1. PAROXETINE HCL [Suspect]
     Dosage: 2.5MG ALTERNATE DAYS
     Route: 048
     Dates: start: 20010101
  2. UNSPECIFIED MEDICATION [Concomitant]

REACTIONS (4)
  - ABNORMAL BEHAVIOUR [None]
  - CRYING [None]
  - DRUG WITHDRAWAL SYNDROME [None]
  - FOOD CRAVING [None]
